FAERS Safety Report 9783981 (Version 1)
Quarter: 2013Q4

REPORT INFORMATION
  Report Type: Spontaneous
  Country: US (occurrence: US)
  Receive Date: 20131226
  Receipt Date: 20131226
  Transmission Date: 20140711
  Serious: No
  Sender: FDA-Public Use
  Company Number: US-PFIZER INC-2013363965

PATIENT
  Age: 50 Year
  Sex: Female

DRUGS (1)
  1. CAMPTOSAR [Suspect]
     Indication: PANCREATIC CARCINOMA
     Dosage: 300 MG, EVERY 2 WEEKS
     Dates: start: 20120815

REACTIONS (2)
  - Disease progression [Unknown]
  - Pancreatic carcinoma [Unknown]
